FAERS Safety Report 7754430-0 (Version None)
Quarter: 2011Q3

REPORT INFORMATION
  Report Type: 
  Country: None (occurrence: None)
  Receive Date: 20110915
  Receipt Date: 20110906
  Transmission Date: 20111222
  Serious: Yes (Hospitalization)
  Sender: FDA-Public Use
  Company Number: US-CELGENEUS-163-21880-11090621

PATIENT
  Sex: Female
  Weight: 58.112 kg

DRUGS (8)
  1. BONIVA [Concomitant]
     Route: 065
  2. ASPIRIN [Concomitant]
     Route: 065
  3. PREDNISONE [Concomitant]
     Route: 065
  4. REVLIMID [Suspect]
     Indication: MYELOFIBROSIS
     Dosage: 10 MILLIGRAM
     Route: 048
     Dates: start: 20101019
  5. CETIRIZINE HCL [Concomitant]
     Route: 065
  6. LOVAZA [Concomitant]
     Route: 065
  7. LASIX [Concomitant]
     Route: 065
  8. NEXIUM [Concomitant]
     Route: 065

REACTIONS (2)
  - BALANCE DISORDER [None]
  - PLATELET COUNT INCREASED [None]
